FAERS Safety Report 20177224 (Version 1)
Quarter: 2021Q4

REPORT INFORMATION
  Report Type: Report from Study
  Country: PK (occurrence: PK)
  Receive Date: 20211213
  Receipt Date: 20211213
  Transmission Date: 20220303
  Serious: Yes (Death)
  Sender: FDA-Public Use
  Company Number: PK-NOVARTISPH-NVSC2021PK284315

PATIENT
  Age: 67 Year
  Sex: Female
  Weight: 87 kg

DRUGS (1)
  1. KISQALI [Suspect]
     Active Substance: RIBOCICLIB
     Indication: Breast cancer metastatic
     Dosage: 200 MG (3 TAB OD)
     Route: 048
     Dates: start: 20200719

REACTIONS (1)
  - Death [Fatal]

NARRATIVE: CASE EVENT DATE: 20201116
